FAERS Safety Report 4498797-8 (Version None)
Quarter: 2004Q4

REPORT INFORMATION
  Report Type: 
  Country: None (occurrence: None)
  Receive Date: 20041111
  Receipt Date: 20041103
  Transmission Date: 20050328
  Serious: Yes (Hospitalization)
  Sender: FDA-Public Use
  Company Number: 200420986GDDC

PATIENT
  Age: 72 Year
  Sex: Female
  Weight: 139 kg

DRUGS (11)
  1. FLUDEX [Suspect]
     Indication: ESSENTIAL HYPERTENSION
     Route: 048
  2. BIPROFENID [Suspect]
     Route: 048
     Dates: start: 20040921, end: 20040923
  3. ATENOLOL [Suspect]
     Indication: ESSENTIAL HYPERTENSION
     Route: 048
  4. ENALAPRIL MALEATE [Suspect]
     Indication: ESSENTIAL HYPERTENSION
     Route: 048
     Dates: end: 20040923
  5. TOPALGIC [Concomitant]
  6. ACETAMINOPHEN W/ PROPOXYPHENE HCL [Concomitant]
  7. NUBAIN [Concomitant]
  8. FRAGMIN [Concomitant]
  9. KARDEGIC [Concomitant]
  10. ELISOR [Concomitant]
  11. FOSAMAX [Concomitant]

REACTIONS (9)
  - ANAEMIA [None]
  - DRUG INTERACTION [None]
  - HIP FRACTURE [None]
  - NEUTROPHIL COUNT INCREASED [None]
  - PROTEIN TOTAL DECREASED [None]
  - RENAL FAILURE ACUTE [None]
  - SINUS BRADYCARDIA [None]
  - VENTRICULAR EXTRASYSTOLES [None]
  - WHITE BLOOD CELL COUNT INCREASED [None]
